FAERS Safety Report 10247942 (Version 2)
Quarter: 2014Q2

REPORT INFORMATION
  Report Type: Spontaneous
  Country: US (occurrence: US)
  Receive Date: 20140619
  Receipt Date: 20140630
  Transmission Date: 20141212
  Serious: No
  Sender: FDA-Public Use
  Company Number: US-BAXTER-2014BAX028557

PATIENT
  Sex: Male

DRUGS (8)
  1. GAMMAGARD LIQUID [Suspect]
     Indication: IMMUNE THROMBOCYTOPENIC PURPURA
     Dosage: 100ML/HR
     Route: 042
     Dates: start: 20140529
  2. GAMMAGARD LIQUID [Suspect]
     Indication: PLATELET COUNT DECREASED
  3. GAMUNEX [Concomitant]
     Indication: PRODUCT USED FOR UNKNOWN INDICATION
     Route: 065
     Dates: start: 2014, end: 2014
  4. GAMMAGARD LIQUID [Concomitant]
     Indication: IMMUNE THROMBOCYTOPENIC PURPURA
     Dosage: 72 ML/HR
     Route: 042
     Dates: start: 2014, end: 2014
  5. GAMMAGARD LIQUID [Concomitant]
     Indication: OFF LABEL USE
  6. GAMMAGARD LIQUID [Concomitant]
     Indication: PLATELET COUNT DECREASED
  7. TYLENOL [Concomitant]
     Indication: PREMEDICATION
     Route: 065
  8. MIRALAX [Concomitant]
     Indication: PRODUCT USED FOR UNKNOWN INDICATION
     Route: 065

REACTIONS (2)
  - Frequent bowel movements [Recovered/Resolved]
  - Headache [Recovered/Resolved]
